FAERS Safety Report 18123198 (Version 1)
Quarter: 2020Q3

REPORT INFORMATION
  Report Type: Spontaneous
  Country: CH (occurrence: CH)
  Receive Date: 20200807
  Receipt Date: 20200807
  Transmission Date: 20201103
  Serious: Yes (Other)
  Sender: FDA-Public Use
  Company Number: CH-ABBVIE-20K-151-3476689-00

PATIENT
  Age: 53 Year
  Sex: Male

DRUGS (10)
  1. MIDAZOLAM. [Concomitant]
     Active Substance: MIDAZOLAM
     Indication: PRODUCT USED FOR UNKNOWN INDICATION
     Dates: start: 20200323, end: 20200324
  2. ENOXAPARIN [Concomitant]
     Active Substance: ENOXAPARIN
     Indication: PRODUCT USED FOR UNKNOWN INDICATION
     Dates: start: 20200322
  3. KALETRA [Suspect]
     Active Substance: LOPINAVIR\RITONAVIR
     Indication: COVID-19
     Dosage: LOPINAVIR: 200MG; ??RITONAVIR: 50MG
     Route: 048
     Dates: start: 20200322, end: 20200323
  4. PLAQUENIL [Suspect]
     Active Substance: HYDROXYCHLOROQUINE SULFATE
     Indication: COVID-19
     Route: 048
     Dates: start: 20200322, end: 20200322
  5. PARACETAMOL [Concomitant]
     Active Substance: ACETAMINOPHEN
     Indication: PRODUCT USED FOR UNKNOWN INDICATION
     Dates: end: 20200324
  6. ONDANSETRON [Suspect]
     Active Substance: ONDANSETRON
     Indication: COVID-19
     Route: 042
     Dates: start: 20200324, end: 20200324
  7. PARACETAMOL [Concomitant]
     Active Substance: ACETAMINOPHEN
     Dosage: DOSE DECREASED?AS REQUIRED
     Dates: start: 20200324
  8. HALOPERIDOL. [Suspect]
     Active Substance: HALOPERIDOL
     Indication: COVID-19
     Route: 030
     Dates: start: 20200323, end: 20200323
  9. HALOPERIDOL. [Suspect]
     Active Substance: HALOPERIDOL
     Route: 030
     Dates: start: 20200324, end: 20200324
  10. AMOXICILLIN/CLAVULANIC ACID [Concomitant]
     Active Substance: AMOXICILLIN\CLAVULANIC ACID
     Indication: COVID-19
     Dosage: EVERY 6 HOURS
     Route: 042
     Dates: start: 20200322, end: 20200325

REACTIONS (3)
  - Off label use [Recovered/Resolved]
  - Electrocardiogram QT prolonged [Recovered/Resolved]
  - Drug interaction [Recovered/Resolved]

NARRATIVE: CASE EVENT DATE: 2020
